FAERS Safety Report 6215418-4 (Version None)
Quarter: 2009Q2

REPORT INFORMATION
  Report Type: 
  Country: None (occurrence: None)
  Receive Date: 20090603
  Receipt Date: 20090519
  Transmission Date: 20091009
  Serious: Yes (Other)
  Sender: FDA-Public Use
  Company Number: 2008AL008130

PATIENT
  Age: 59 Year
  Sex: Male
  Weight: 97.5234 kg

DRUGS (31)
  1. DIGOXIN [Suspect]
     Dosage: 0.25MG, DAILY, PO
     Route: 048
  2. HYDROCODONE BITARTRATE [Concomitant]
  3. PROMETHAZINE [Concomitant]
  4. CLOBETASOL PROPIONATE [Concomitant]
  5. AMOXICILLIN [Concomitant]
  6. PROPOXYPHENE HCL CAP [Concomitant]
  7. GLIPIZIDE [Concomitant]
  8. FUROSEMIDE [Concomitant]
  9. HYDROCHLOROTHIAZIDE [Concomitant]
  10. OMEPRAZOLE [Concomitant]
  11. BACTROBAN [Concomitant]
  12. PLAVIX [Concomitant]
  13. ISOSORBIDE [Concomitant]
  14. FERROUS SULFATE TAB [Concomitant]
  15. GLYBURIDE [Concomitant]
  16. ACETAMINOPHEN [Concomitant]
  17. LEVETIRACETAM [Concomitant]
  18. HYDRALAZINE HCL [Concomitant]
  19. CITALOPRAM [Concomitant]
  20. AZITHROMYCIN [Concomitant]
  21. LEVETIRACETAM [Concomitant]
  22. HYDRALAZINE HCL [Concomitant]
  23. CITALOPRAM [Concomitant]
  24. AZITHROMYCIN [Concomitant]
  25. ELIDEL [Concomitant]
  26. LEVAQUIN [Concomitant]
  27. SIMVASTATIN [Concomitant]
  28. RANITIDINE [Concomitant]
  29. WARFARIN SODIUM [Concomitant]
  30. PAROXETINE HCL [Concomitant]
  31. POTASSIUM CHLORIDE [Concomitant]

REACTIONS (11)
  - ATRIOVENTRICULAR BLOCK FIRST DEGREE [None]
  - CEREBROVASCULAR ACCIDENT [None]
  - FATIGUE [None]
  - INJURY [None]
  - ISCHAEMIC CARDIOMYOPATHY [None]
  - MYOCARDIAL INFARCTION [None]
  - OEDEMA PERIPHERAL [None]
  - PALPITATIONS [None]
  - RENAL DISORDER [None]
  - RENAL FAILURE ACUTE [None]
  - THERAPEUTIC AGENT TOXICITY [None]
